FAERS Safety Report 9288023 (Version 1)
Quarter: 2013Q2

REPORT INFORMATION
  Report Type: Spontaneous
  Country: US (occurrence: US)
  Receive Date: 20130514
  Receipt Date: 20130514
  Transmission Date: 20140414
  Serious: Yes (Hospitalization, Other)
  Sender: FDA-Public Use
  Company Number: US-ELI_LILLY_AND_COMPANY-US201305001980

PATIENT
  Sex: Male

DRUGS (2)
  1. HUMALOG LISPRO [Suspect]
     Indication: DIABETES MELLITUS
     Dosage: UNK UNK, UNKNOWN
  2. OXYGEN [Concomitant]
     Dosage: UNK, UNKNOWN

REACTIONS (3)
  - Coronary artery occlusion [Unknown]
  - Memory impairment [Not Recovered/Not Resolved]
  - Incorrect dose administered [Unknown]
